FAERS Safety Report 4918337-6 (Version None)
Quarter: 2006Q1

REPORT INFORMATION
  Report Type: 
  Country: None (occurrence: None)
  Receive Date: 20060217
  Receipt Date: 20060217
  Transmission Date: 20060701
  Serious: Yes (Other)
  Sender: FDA-Public Use
  Company Number: None

PATIENT
  Age: 44 Year
  Sex: Male
  Weight: 86.8 kg

DRUGS (1)
  1. IBUPROFEN [Suspect]

REACTIONS (1)
  - PULMONARY EOSINOPHILIA [None]
